FAERS Safety Report 5237333-5 (Version None)
Quarter: 2007Q1

REPORT INFORMATION
  Report Type: 
  Country: None (occurrence: None)
  Receive Date: 20070213
  Receipt Date: 20070130
  Transmission Date: 20070707
  Serious: No
  Sender: FDA-Public Use
  Company Number: US-ELI_LILLY_AND_COMPANY-US200702000506

PATIENT
  Age: 36 Year
  Sex: Female

DRUGS (3)
  1. CYMBALTA [Suspect]
     Dosage: 60 MG, UNK
     Dates: start: 20061215
  2. CYMBALTA [Suspect]
     Dosage: 30 MG, UNK
  3. TORADOL [Concomitant]
     Indication: PAIN
     Dates: end: 20070123

REACTIONS (1)
  - LIVER FUNCTION TEST ABNORMAL [None]
